FAERS Safety Report 12557252 (Version 2)
Quarter: 2016Q3

REPORT INFORMATION
  Report Type: Spontaneous
  Country: US (occurrence: US)
  Receive Date: 20160714
  Receipt Date: 20160802
  Transmission Date: 20161109
  Serious: No
  Sender: FDA-Public Use
  Company Number: US-PFIZER INC-2757052

PATIENT
  Age: 19 Year
  Sex: Female

DRUGS (2)
  1. CEFTRIAXONE SODIUM. [Suspect]
     Active Substance: CEFTRIAXONE SODIUM
     Indication: GONORRHOEA
     Dosage: 250 MG, ONE TIME
     Route: 030
     Dates: start: 20150216, end: 20150216
  2. LIDOCAINE HYDROCHLORIDE. [Concomitant]
     Active Substance: LIDOCAINE HYDROCHLORIDE
     Indication: MEDICATION DILUTION
     Dosage: 1 ML, ONE TIME
     Route: 030
     Dates: start: 20150216, end: 20150216

REACTIONS (3)
  - Expired product administered [Recovered/Resolved]
  - Product expiration date issue [Recovered/Resolved]
  - No adverse event [Unknown]

NARRATIVE: CASE EVENT DATE: 20150216
